FAERS Safety Report 12948111 (Version 1)
Quarter: 2016Q4

REPORT INFORMATION
  Report Type: Spontaneous
  Country: JP (occurrence: JP)
  Receive Date: 20161117
  Receipt Date: 20161117
  Transmission Date: 20170207
  Serious: Yes (Death)
  Sender: FDA-Public Use
  Company Number: JP-HORIZON-BUP-0115-2016

PATIENT
  Age: 0 Year
  Sex: Female
  Weight: .56 kg

DRUGS (6)
  1. INOVAN [Concomitant]
     Active Substance: DOPAMINE HYDROCHLORIDE
     Route: 042
     Dates: start: 20161111, end: 20161114
  2. DOBUTAMINE HYDROCHLORIDE. [Concomitant]
     Active Substance: DOBUTAMINE HYDROCHLORIDE
     Route: 041
     Dates: start: 20161111, end: 20161114
  3. PITRESSIN [Concomitant]
     Active Substance: VASOPRESSIN
     Route: 030
     Dates: start: 20161111, end: 20161114
  4. BUPHENYL [Suspect]
     Active Substance: SODIUM PHENYLBUTYRATE
     Indication: PRODUCT USED FOR UNKNOWN INDICATION
     Dates: start: 20161111, end: 20161114
  5. MEYLON [Concomitant]
     Active Substance: SODIUM BICARBONATE
     Route: 042
     Dates: start: 20161111, end: 20161114
  6. ADRENALINE [Concomitant]
     Active Substance: EPINEPHRINE
     Dates: start: 20161111, end: 20161114

REACTIONS (1)
  - Multiple organ dysfunction syndrome [Fatal]

NARRATIVE: CASE EVENT DATE: 20161113
